FAERS Safety Report 13426512 (Version 1)
Quarter: 2017Q2

REPORT INFORMATION
  Report Type: Spontaneous
  Country: US (occurrence: US)
  Receive Date: 20170411
  Receipt Date: 20170411
  Transmission Date: 20170830
  Serious: Yes (Death)
  Sender: FDA-Public Use
  Company Number: PHEH2017US010468

PATIENT
  Age: 64 Year
  Sex: Male

DRUGS (1)
  1. MEKINIST [Suspect]
     Active Substance: TRAMETINIB DIMETHYL SULFOXIDE
     Indication: MALIGNANT MELANOMA IN SITU
     Dosage: 2 MG, QD
     Route: 048
     Dates: start: 20160817, end: 20161225

REACTIONS (1)
  - Death [Fatal]

NARRATIVE: CASE EVENT DATE: 20161226
